FAERS Safety Report 8337667-1 (Version None)
Quarter: 2012Q2

REPORT INFORMATION
  Report Type: 
  Country: None (occurrence: None)
  Receive Date: 20120504
  Receipt Date: 20120504
  Transmission Date: 20120825
  Serious: Yes (Hospitalization)
  Sender: FDA-Public Use
  Company Number: None

PATIENT
  Sex: Female

DRUGS (1)
  1. OPTIRAY 160 [Suspect]
     Indication: COMPUTERISED TOMOGRAM ABDOMEN
     Dosage: |DOSAGETEXT: 100ML||STRENGTH: 320MG/ML||FREQ: X1||ROUTE: INTRAVENOUS (NOT OTHERWISE SPECIFIED)|
     Route: 042
     Dates: start: 20120503, end: 20120503

REACTIONS (4)
  - CONTRAST MEDIA REACTION [None]
  - OROPHARYNGEAL PAIN [None]
  - PRURITUS [None]
  - ERYTHEMA [None]
